FAERS Safety Report 6158763-3 (Version None)
Quarter: 2009Q2

REPORT INFORMATION
  Report Type: 
  Country: None (occurrence: None)
  Receive Date: 20090417
  Receipt Date: 20090407
  Transmission Date: 20091009
  Serious: Yes (Death, Hospitalization)
  Sender: FDA-Public Use
  Company Number: B0568985A

PATIENT
  Sex: Female

DRUGS (17)
  1. COMBIVIR [Suspect]
     Indication: HIV INFECTION
     Dosage: 1TAB TWICE PER DAY
     Route: 048
     Dates: start: 20081118, end: 20081126
  2. ATOVAQUONE [Suspect]
     Indication: DRUG USE FOR UNKNOWN INDICATION
     Dosage: 1500MG PER DAY
     Route: 048
     Dates: start: 20081108, end: 20081124
  3. AMIKLIN [Concomitant]
     Route: 042
     Dates: start: 20081104, end: 20081126
  4. OFLOXACIN [Concomitant]
     Dosage: 200MG TWICE PER DAY
     Route: 048
     Dates: start: 20081104, end: 20081126
  5. DEXAMBUTOL [Concomitant]
     Dosage: 500MG TWICE PER DAY
     Route: 048
     Dates: start: 20081104, end: 20081124
  6. FUZEON [Concomitant]
     Dosage: 90MG TWICE PER DAY
     Route: 058
     Dates: start: 20081118, end: 20081126
  7. LOVENOX [Concomitant]
     Dosage: 2000UNIT PER DAY
     Route: 058
     Dates: start: 20081107
  8. NEUPOGEN [Concomitant]
     Route: 058
     Dates: start: 20081118, end: 20081120
  9. PRIMPERAN [Concomitant]
     Dosage: 10MG THREE TIMES PER DAY
     Route: 048
     Dates: start: 20081123
  10. MOTILIUM [Concomitant]
     Dosage: 10MG THREE TIMES PER DAY
     Route: 048
     Dates: start: 20081124
  11. PARACETAMOL [Concomitant]
     Dosage: 1G THREE TIMES PER DAY
     Route: 048
     Dates: start: 20081124
  12. TRAMADOL HCL [Concomitant]
     Dosage: 200MG PER DAY
     Route: 048
     Dates: start: 20081107, end: 20081125
  13. DIFFU K [Concomitant]
     Dosage: 600MG THREE TIMES PER DAY
     Route: 048
     Dates: start: 20081123, end: 20081126
  14. ATARAX [Concomitant]
     Dosage: 25MG THREE TIMES PER DAY
     Route: 048
     Dates: start: 20081107
  15. TIENAM [Concomitant]
     Route: 065
     Dates: start: 20081126
  16. VANCOMYCINE [Concomitant]
     Route: 065
     Dates: start: 20081126
  17. MYAMBUTOL [Concomitant]
     Route: 065
     Dates: start: 20081104, end: 20081124

REACTIONS (8)
  - DISSEMINATED INTRAVASCULAR COAGULATION [None]
  - HEPATIC FAILURE [None]
  - HYPONATRAEMIA [None]
  - LACTIC ACIDOSIS [None]
  - MULTI-ORGAN FAILURE [None]
  - PYREXIA [None]
  - RASH [None]
  - RENAL FAILURE ACUTE [None]
